FAERS Safety Report 11349878 (Version 2)
Quarter: 2015Q3

REPORT INFORMATION
  Report Type: Spontaneous
  Country: GB (occurrence: GB)
  Receive Date: 20150807
  Receipt Date: 20150811
  Transmission Date: 20151125
  Serious: Yes (Other)
  Sender: FDA-Public Use
  Company Number: GB-JNJFOC-20150723222

PATIENT
  Age: 10 Year
  Sex: Female

DRUGS (1)
  1. OVEX [Suspect]
     Active Substance: MEBENDAZOLE
     Indication: HELMINTHIC INFECTION
     Route: 065
     Dates: start: 20150725

REACTIONS (2)
  - Drug ineffective [Unknown]
  - Helminthic infection [Unknown]

NARRATIVE: CASE EVENT DATE: 20150728
